FAERS Safety Report 5870421-9 (Version None)
Quarter: 2008Q3

REPORT INFORMATION
  Report Type: 
  Country: None (occurrence: None)
  Receive Date: 20080904
  Receipt Date: 20080513
  Transmission Date: 20090109
  Serious: No
  Sender: FDA-Public Use
  Company Number: US-BRISTOL-MYERS SQUIBB COMPANY-14189898

PATIENT
  Age: 59 Year
  Sex: Female
  Weight: 136 kg

DRUGS (1)
  1. DEFINITY [Suspect]
     Dosage: 1 DOSAGE FORM = 4CC (1.5CC IN 8.5CC OF NORMAL SALINE)
     Route: 042

REACTIONS (2)
  - CHEST DISCOMFORT [None]
  - DYSGEUSIA [None]
